FAERS Safety Report 12261268 (Version 4)
Quarter: 2016Q3

REPORT INFORMATION
  Report Type: Spontaneous
  Country: JP (occurrence: JP)
  Receive Date: 20160412
  Receipt Date: 20160711
  Transmission Date: 20161109
  Serious: Yes (Death, Other)
  Sender: FDA-Public Use
  Company Number: JP-009507513-1604JPN006839

PATIENT
  Age: 64 Year
  Sex: Male
  Weight: 80 kg

DRUGS (21)
  1. VANCOMYCIN [Concomitant]
     Active Substance: VANCOMYCIN
     Indication: BACTERAEMIA
     Dosage: DAILY DOSAGE UNKNOWN
     Route: 041
     Dates: end: 20160218
  2. METHYCOBAL [Concomitant]
     Active Substance: METHYLCOBALAMIN
     Indication: NEUROPATHY PERIPHERAL
     Dosage: 500 MICROGRAM, TID
     Route: 048
     Dates: end: 20160229
  3. SAMSCA [Concomitant]
     Active Substance: TOLVAPTAN
     Indication: FLUID RETENTION
     Dosage: 7.5 MG, QD
     Route: 048
     Dates: end: 20160229
  4. KAYEXALATE [Concomitant]
     Active Substance: SODIUM POLYSTYRENE SULFONATE
     Indication: HYPERKALAEMIA
     Dosage: 1 DF, QD
     Route: 048
     Dates: end: 20160229
  5. SPIRONOLACTONE. [Concomitant]
     Active Substance: SPIRONOLACTONE
     Dosage: DAILY DOSAGE UNKNOWN
     Route: 048
  6. ALBUMIN HUMAN [Concomitant]
     Active Substance: ALBUMIN HUMAN
     Dosage: DAILY DOSAGE UNKNOWN
     Route: 051
  7. SODIUM FERROUS CITRATE [Concomitant]
     Active Substance: SODIUM FERROUS CITRATE
     Dosage: DAILY DOSAGE UNKNOWN, FORMULATION POR
     Route: 048
  8. CARBOCYSTEINE [Concomitant]
     Active Substance: CARBOCYSTEINE
     Indication: CHRONIC SINUSITIS
     Dosage: 500 MG, TID
     Route: 048
     Dates: end: 20160229
  9. AMINOLEBAN [Concomitant]
     Active Substance: AMINO ACIDS
     Dosage: DAILY DOSAGE UNKNOWN
     Route: 041
  10. POLAPREZINC [Concomitant]
     Active Substance: POLAPREZINC
     Indication: GASTRIC ULCER
     Dosage: 1 DF, BID
     Route: 048
     Dates: end: 20160229
  11. PIARLE [Concomitant]
     Dosage: DAILY DOSAGE UNKNOWN
     Route: 048
  12. FEBURIC [Concomitant]
     Active Substance: FEBUXOSTAT
     Dosage: DAILY DOSAGE UNKNOWN
     Route: 048
  13. FUROSEMIDE. [Concomitant]
     Active Substance: FUROSEMIDE
     Dosage: DAILY DOSAGE UNKNOWN
     Route: 048
  14. CUBICIN [Suspect]
     Active Substance: DAPTOMYCIN
     Indication: BACTERAEMIA
     Dosage: 420 MG, QOD
     Route: 041
     Dates: start: 20160219, end: 20160229
  15. AMINOLEBAN EN [Concomitant]
     Active Substance: UNSPECIFIED INGREDIENT
     Indication: MALNUTRITION
     Dosage: 1 DF, QD
     Route: 048
     Dates: end: 20160229
  16. NEXIUM [Concomitant]
     Active Substance: ESOMEPRAZOLE MAGNESIUM
     Indication: GASTRIC ULCER
     Dosage: 20 MG, QD
     Route: 048
     Dates: end: 20160229
  17. BENZBROMARONE [Concomitant]
     Active Substance: BENZBROMARONE
     Indication: HYPERURICAEMIA
     Dosage: 25 MG, QD
     Route: 048
     Dates: end: 20160223
  18. TRESIBA [Concomitant]
     Active Substance: INSULIN DEGLUDEC
     Dosage: DAILY DOSAGE UNKNOWN
     Route: 051
  19. MAGMITT [Concomitant]
     Active Substance: MAGNESIUM OXIDE
     Indication: CONSTIPATION
     Dosage: 330 MG, TID
     Route: 048
     Dates: end: 20160229
  20. URSODIOL. [Concomitant]
     Active Substance: URSODIOL
     Indication: HEPATIC CIRRHOSIS
     Dosage: 200 MG, TID
     Route: 048
     Dates: end: 20160229
  21. MOSAPRIDE CITRATE SODIUM [Concomitant]
     Dosage: DAILY DOSAGE UNKNOWN
     Route: 048

REACTIONS (2)
  - Hepatic cirrhosis [Fatal]
  - Blood creatine phosphokinase increased [Unknown]

NARRATIVE: CASE EVENT DATE: 2016
